FAERS Safety Report 21759121 (Version 1)
Quarter: 2022Q4

REPORT INFORMATION
  Report Type: Spontaneous
  Country: US (occurrence: US)
  Receive Date: 20221221
  Receipt Date: 20221221
  Transmission Date: 20230113
  Serious: No
  Sender: FDA-Public Use
  Company Number: US-ASCENDIS PHARMA-2022US000943

PATIENT

DRUGS (1)
  1. SKYTROFA [Suspect]
     Active Substance: LONAPEGSOMATROPIN-TCGD
     Indication: Hypopituitarism

REACTIONS (6)
  - Hypersomnia [Unknown]
  - Headache [Unknown]
  - Injection site rash [Unknown]
  - Pyrexia [Unknown]
  - Abdominal pain upper [Unknown]
  - Hypersensitivity [Unknown]
